FAERS Safety Report 5976640-5 (Version None)
Quarter: 2008Q4

REPORT INFORMATION
  Report Type: 
  Country: None (occurrence: None)
  Receive Date: 20081202
  Receipt Date: 20081202
  Transmission Date: 20090506
  Serious: Yes (Hospitalization)
  Sender: FDA-Public Use
  Company Number: None

PATIENT
  Age: 24 Year
  Sex: Female
  Weight: 58.51 kg

DRUGS (1)
  1. DOXYCYCLINE [Suspect]
     Indication: PNEUMONIA
     Dosage: 100 MG EVERY DAY PO
     Route: 048
     Dates: start: 20081124

REACTIONS (3)
  - ANGIOEDEMA [None]
  - LIP SWELLING [None]
  - RASH [None]
